FAERS Safety Report 23593390 (Version 1)
Quarter: 2024Q1

REPORT INFORMATION
  Report Type: Spontaneous
  Country: FR (occurrence: FR)
  Receive Date: 20240304
  Receipt Date: 20240304
  Transmission Date: 20240410
  Serious: Yes (Hospitalization)
  Sender: FDA-Public Use
  Company Number: None

PATIENT
  Age: 75 Year
  Sex: Male
  Weight: 58.6 kg

DRUGS (2)
  1. GLIVEC [Suspect]
     Active Substance: IMATINIB MESYLATE
     Indication: Gastrointestinal stromal tumour
     Dosage: 1 DOSAGE FORM, QD
     Route: 048
     Dates: start: 2002, end: 2017
  2. GLIVEC [Suspect]
     Active Substance: IMATINIB MESYLATE
     Dosage: 1 DOSAGE FORM, QD
     Route: 048
     Dates: start: 202401, end: 20240214

REACTIONS (4)
  - Hepatic cytolysis [Recovering/Resolving]
  - Cholestasis [Recovering/Resolving]
  - General physical health deterioration [Recovering/Resolving]
  - Hypotension [Recovering/Resolving]

NARRATIVE: CASE EVENT DATE: 20240209
